FAERS Safety Report 6560118-4 (Version None)
Quarter: 2010Q1

REPORT INFORMATION
  Report Type: 
  Country: None (occurrence: None)
  Receive Date: 20100129
  Receipt Date: 20051004
  Transmission Date: 20100710
  Serious: Yes (Hospitalization)
  Sender: FDA-Public Use
  Company Number: US-ALLERGAN-200403207

PATIENT
  Age: 63 Year
  Sex: Female

DRUGS (5)
  1. BOTOX COSMETIC [Suspect]
     Indication: SKIN WRINKLING
     Dosage: 37.5UNITS, SINGLE
     Route: 030
     Dates: start: 20040322
  2. BOTOX COSMETIC [Suspect]
     Dosage: 10UNITS, SINGLE
     Route: 030
     Dates: start: 20040324
  3. SUDAFED 12 HOUR [Concomitant]
     Indication: SEASONAL ALLERGY
  4. ASPIRIN [Concomitant]
     Indication: DRUG USE FOR UNKNOWN INDICATION
  5. DYAZIDE [Concomitant]
     Indication: DRUG USE FOR UNKNOWN INDICATION

REACTIONS (19)
  - BLEPHARITIS [None]
  - CONJUNCTIVITIS [None]
  - CONJUNCTIVITIS ALLERGIC [None]
  - DACRYOSTENOSIS ACQUIRED [None]
  - ERYTHEMA OF EYELID [None]
  - EYE INFECTION [None]
  - EYE IRRITATION [None]
  - EYE PAIN [None]
  - EYE SWELLING [None]
  - EYELID OEDEMA [None]
  - EYELID PTOSIS [None]
  - FACIAL PARESIS [None]
  - KERATOCONJUNCTIVITIS SICCA [None]
  - LACRIMATION INCREASED [None]
  - MUSCULAR WEAKNESS [None]
  - OCULAR HYPERAEMIA [None]
  - PAROTID ABSCESS [None]
  - SKIN DISORDER [None]
  - SWELLING FACE [None]
